FAERS Safety Report 19081273 (Version 4)
Quarter: 2021Q2

REPORT INFORMATION
  Report Type: Report from Study
  Country: FR (occurrence: FR)
  Receive Date: 20210401
  Receipt Date: 20210416
  Transmission Date: 20210717
  Serious: Yes (Death, Hospitalization)
  Sender: FDA-Public Use
  Company Number: FR-ROCHE-2795952

PATIENT
  Age: 77 Year
  Sex: Male

DRUGS (7)
  1. ATEZOLIZUMAB. [Suspect]
     Active Substance: ATEZOLIZUMAB
     Indication: METASTATIC NEOPLASM
     Route: 042
     Dates: start: 20210303
  2. TAZOCILLINE [Concomitant]
     Active Substance: PIPERACILLIN SODIUM\TAZOBACTAM SODIUM
  3. ORACILLIN [Concomitant]
  4. LUMIGAN [Concomitant]
     Active Substance: BIMATOPROST
  5. EUROBIOL [Concomitant]
  6. XARELTO [Concomitant]
     Active Substance: RIVAROXABAN
  7. UROREC [Concomitant]
     Active Substance: SILODOSIN

REACTIONS (2)
  - Haemoperitoneum [Not Recovered/Not Resolved]
  - General physical condition abnormal [Fatal]

NARRATIVE: CASE EVENT DATE: 20210316
